FAERS Safety Report 4608559-6 (Version None)
Quarter: 2005Q1

REPORT INFORMATION
  Report Type: 
  Country: None (occurrence: None)
  Receive Date: 20050311
  Receipt Date: 20050311
  Transmission Date: 20050727
  Serious: Yes (Death)
  Sender: FDA-Public Use
  Company Number: None

PATIENT
  Age: 70 Year
  Sex: Male
  Weight: 130.2 kg

DRUGS (16)
  1. LOVENOX [Suspect]
     Indication: ATRIAL FIBRILLATION
     Dosage: 120MG EVERY 12 HOURS SUBCUTANEOUS
     Route: 058
     Dates: start: 20041221, end: 20041226
  2. COUMADIN [Suspect]
     Indication: ATRIAL FIBRILLATION
     Dosage: VARIED  DAILY ORAL
     Route: 048
     Dates: start: 20041223, end: 20041227
  3. GLIPIZINE [Concomitant]
  4. ASPIRIN [Concomitant]
  5. THEOPHYLLINE [Concomitant]
  6. GUAIFENESIN [Concomitant]
  7. DILTIAZEM [Concomitant]
  8. TRAMSULOSIN [Concomitant]
  9. SS INSULIN [Concomitant]
  10. BUMETANIDE [Concomitant]
  11. LEVOFLOXACIN [Concomitant]
  12. AMIODARONE [Concomitant]
  13. DIGOXIN LOAD F/B [Concomitant]
  14. METHYLPREDNISOLONE [Concomitant]
  15. DUONEBS [Concomitant]
  16. GLARGINE INSULIN [Concomitant]

REACTIONS (7)
  - GENERAL PHYSICAL HEALTH DETERIORATION [None]
  - HAEMATOCRIT DECREASED [None]
  - HAEMATURIA [None]
  - HAEMOGLOBIN DECREASED [None]
  - METABOLIC SYNDROME [None]
  - RETROPERITONEAL HAEMORRHAGE [None]
  - SLEEP APNOEA SYNDROME [None]
